FAERS Safety Report 9846252 (Version 2)
Quarter: 2014Q1

REPORT INFORMATION
  Report Type: Spontaneous
  Country: MX (occurrence: MX)
  Receive Date: 20140127
  Receipt Date: 20140206
  Transmission Date: 20141002
  Serious: Yes (Hospitalization)
  Sender: FDA-Public Use
  Company Number: PHHY2014MX008946

PATIENT
  Age: 39 Year
  Sex: Female
  Weight: 50 kg

DRUGS (5)
  1. TEGRETOL [Suspect]
     Indication: CONVULSION
     Dosage: 3 DF, DAILY
     Route: 048
  2. TEGRETOL-XR [Suspect]
     Indication: CONVULSION
     Dosage: 600 MG, DAILY (3 TABLETS OF 200 MG, DAILY)
     Route: 048
  3. TEGRETOL-XR [Suspect]
     Dosage: 1200 MG, DAILY (3 TABLETS OF 400 MG)
     Route: 048
  4. LAMICTAL [Concomitant]
     Indication: CONVULSION
     Dosage: 3 DF, DAILY
     Route: 048
     Dates: start: 198901
  5. ATEMPERATOR LP [Concomitant]
     Indication: CONVULSION
     Dosage: 3 DF, DAILY
     Route: 048
     Dates: start: 198901

REACTIONS (2)
  - Drug intolerance [Recovered/Resolved]
  - Convulsion [Recovered/Resolved]
